FAERS Safety Report 15819212 (Version 1)
Quarter: 2019Q1

REPORT INFORMATION
  Report Type: Spontaneous
  Country: US (occurrence: US)
  Receive Date: 20190114
  Receipt Date: 20190114
  Transmission Date: 20190417
  Serious: No
  Sender: FDA-Public Use
  Company Number: US-ROCHE-2177496

PATIENT
  Sex: Male

DRUGS (2)
  1. NUTROPIN [Suspect]
     Active Substance: SOMATROPIN
     Indication: SMALL FOR DATES BABY
     Dosage: ONCE DAILY FOR 6 DAYS ;ONGOING: UNKNOWN, DOSE: 2.0 (UNIT UNKNOWN)
     Route: 058
  2. NUTROPIN [Suspect]
     Active Substance: SOMATROPIN
     Dosage: ONCE DAILY FOR 6 DAYS ;ONGOING: UNKNOWN, DOSE: 1.8 (UNIT UNKNOWN)
     Route: 058
     Dates: start: 20180417

REACTIONS (2)
  - No adverse event [Unknown]
  - Intentional product misuse [Unknown]
